FAERS Safety Report 9758554 (Version 1)
Quarter: 2013Q4

REPORT INFORMATION
  Report Type: Spontaneous
  Country: US (occurrence: None)
  Receive Date: 20131216
  Receipt Date: 20131216
  Transmission Date: 20140711
  Serious: No
  Sender: FDA-Public Use
  Company Number: CABO-13002465

PATIENT
  Age: 78 Year
  Sex: Male

DRUGS (1)
  1. COMETRIQ (CABOZANTINIB) CAPSULE [Suspect]
     Indication: THYROID CANCER
     Dosage: 140 MG, QD. ORAL
     Dates: start: 20130222, end: 20130315

REACTIONS (9)
  - Amnesia [None]
  - Pruritus [None]
  - Angina pectoris [None]
  - Balance disorder [None]
  - Dizziness [None]
  - Pain [None]
  - Rash [None]
  - Decreased appetite [None]
  - Fatigue [None]
